FAERS Safety Report 8285309-6 (Version None)
Quarter: 2012Q2

REPORT INFORMATION
  Report Type: 
  Country: None (occurrence: None)
  Receive Date: 20120413
  Receipt Date: 20110831
  Transmission Date: 20120825
  Serious: No
  Sender: FDA-Public Use
  Company Number: US-ASTRAZENECA-2011SE52747

PATIENT
  Age: 69 Year
  Sex: Male

DRUGS (4)
  1. LORTAB [Concomitant]
  2. NEXIUM [Suspect]
     Route: 048
  3. SOMA [Concomitant]
  4. XANAX [Concomitant]

REACTIONS (2)
  - DYSPEPSIA [None]
  - DRUG DOSE OMISSION [None]
